FAERS Safety Report 7126478-0 (Version None)
Quarter: 2010Q4

REPORT INFORMATION
  Report Type: 
  Country: None (occurrence: None)
  Receive Date: 20101129
  Receipt Date: 20101119
  Transmission Date: 20110411
  Serious: Yes (Hospitalization)
  Sender: FDA-Public Use
  Company Number: PHHO2010JP14873

PATIENT
  Sex: Female

DRUGS (5)
  1. AMN107 AMN+CAP [Suspect]
     Indication: GASTROINTESTINAL STROMAL TUMOUR
     Dosage: UNK
     Route: 048
     Dates: start: 20100420
  2. AMN107 AMN+CAP [Suspect]
     Dosage: UNK
     Dates: start: 20100430
  3. FERRUM [Concomitant]
  4. PARIET [Concomitant]
  5. RED BLOOD CELLS [Concomitant]

REACTIONS (1)
  - ABDOMINAL PAIN [None]
